FAERS Safety Report 14524548 (Version 1)
Quarter: 2018Q1

REPORT INFORMATION
  Report Type: Spontaneous
  Country: US (occurrence: US)
  Receive Date: 20180213
  Receipt Date: 20180213
  Transmission Date: 20180509
  Serious: Yes (Hospitalization)
  Sender: FDA-Public Use
  Company Number: US-AMGEN-USASP2018019360

PATIENT
  Sex: Female

DRUGS (5)
  1. CYCLOPHOSPHAMIDE. [Concomitant]
     Active Substance: CYCLOPHOSPHAMIDE
     Dosage: UNK, CYCLICAL (4 CYCLES)
  2. TAXOL [Concomitant]
     Active Substance: PACLITAXEL
     Dosage: UNK
  3. NEULASTA [Suspect]
     Active Substance: PEGFILGRASTIM
     Indication: PRODUCT USED FOR UNKNOWN INDICATION
     Dosage: UNK
     Route: 065
  4. ADRIAMYCIN [Concomitant]
     Active Substance: DOXORUBICIN HYDROCHLORIDE
     Dosage: UNK UNK, CYCLICAL (4 CYCLES)
  5. TAXOL [Concomitant]
     Active Substance: PACLITAXEL
     Dosage: UNK UNK, QWK

REACTIONS (2)
  - White blood cell count increased [Recovering/Resolving]
  - Tachycardia [Unknown]
